FAERS Safety Report 25991058 (Version 1)
Quarter: 2025Q4

REPORT INFORMATION
  Report Type: Spontaneous
  Country: PA (occurrence: PA)
  Receive Date: 20251103
  Receipt Date: 20251103
  Transmission Date: 20260118
  Serious: Yes (Other)
  Sender: BAYER HEALTHCARE PHARMACEUTICALS INC.
  Company Number: PA-BAYER-2025A144182

PATIENT
  Age: 38 Year
  Sex: Female

DRUGS (2)
  1. DIENOGEST [Suspect]
     Active Substance: DIENOGEST
     Indication: Endometriosis
     Dosage: 1 DF
     Route: 048
     Dates: start: 202308
  2. DIENOGEST\ESTRADIOL VALERATE [Suspect]
     Active Substance: DIENOGEST\ESTRADIOL VALERATE

REACTIONS (3)
  - Therapy cessation [Not Recovered/Not Resolved]
  - Haemorrhage [Recovered/Resolved]
  - Therapy cessation [Not Recovered/Not Resolved]

NARRATIVE: CASE EVENT DATE: 20250601
